FAERS Safety Report 9069019 (Version 1)
Quarter: 2013Q1

REPORT INFORMATION
  Report Type: Spontaneous
  Country: US (occurrence: US)
  Receive Date: 20130215
  Receipt Date: 20130215
  Transmission Date: 20140127
  Serious: No
  Sender: FDA-Public Use
  Company Number: US-PFIZER INC-2013056510

PATIENT
  Sex: Male

DRUGS (1)
  1. DILANTIN [Suspect]
     Dosage: UNK

REACTIONS (3)
  - Accidental exposure to product [Unknown]
  - Muscle twitching [Not Recovered/Not Resolved]
  - Eye pain [Not Recovered/Not Resolved]
